FAERS Safety Report 9701593 (Version 2)
Quarter: 2013Q4

REPORT INFORMATION
  Report Type: Spontaneous
  Country: US (occurrence: US)
  Receive Date: 20131119
  Receipt Date: 20131119
  Transmission Date: 20140711
  Serious: Yes (Other)
  Sender: FDA-Public Use
  Company Number: US-ORACLE-2011S1000086

PATIENT
  Age: 45 Year
  Sex: Male
  Weight: 81.65 kg

DRUGS (25)
  1. KRYSTEXXA INJECTION [Suspect]
     Indication: GOUT
     Route: 042
     Dates: start: 20111018, end: 20111018
  2. KRYSTEXXA INJECTION [Suspect]
     Indication: GOUT
     Route: 042
     Dates: start: 20111004, end: 20111004
  3. KRYSTEXXA INJECTION [Suspect]
     Indication: GOUT
     Route: 042
     Dates: start: 20110920, end: 20110920
  4. KRYSTEXXA INJECTION [Suspect]
     Indication: GOUT
     Route: 042
     Dates: start: 20110906, end: 20110906
  5. TYLENOL /00020001/ [Concomitant]
     Indication: PREMEDICATION
     Route: 048
     Dates: start: 20111018, end: 20111018
  6. TYLENOL /00020001/ [Concomitant]
     Indication: PREMEDICATION
     Route: 048
     Dates: start: 20111004, end: 20111004
  7. TYLENOL /00020001/ [Concomitant]
     Indication: PREMEDICATION
     Route: 048
     Dates: start: 20110920, end: 20110920
  8. TYLENOL /00020001/ [Concomitant]
     Indication: PREMEDICATION
     Route: 048
     Dates: start: 20110906, end: 20110906
  9. BENADRYL /00945501/ [Concomitant]
     Indication: PREMEDICATION
     Route: 048
     Dates: start: 20111018, end: 20111018
  10. BENADRYL /00945501/ [Concomitant]
     Indication: PREMEDICATION
     Route: 048
     Dates: start: 20111004, end: 20111004
  11. BENADRYL /00945501/ [Concomitant]
     Indication: PREMEDICATION
     Route: 048
     Dates: start: 20110920, end: 20110920
  12. BENADRYL /00945501/ [Concomitant]
     Indication: PREMEDICATION
     Route: 048
     Dates: start: 20110906, end: 20110906
  13. SOLU-MEDROL [Concomitant]
     Indication: PREMEDICATION
     Route: 042
     Dates: start: 20111018, end: 20111018
  14. SOLU-MEDROL [Concomitant]
     Indication: PREMEDICATION
     Route: 042
     Dates: start: 20111004, end: 20111004
  15. SOLU-MEDROL [Concomitant]
     Indication: PREMEDICATION
     Route: 042
     Dates: start: 20110920, end: 20110920
  16. SOLU-MEDROL [Concomitant]
     Indication: PREMEDICATION
     Route: 042
     Dates: start: 20110906, end: 20110906
  17. JANUVIA [Concomitant]
     Indication: PRODUCT USED FOR UNKNOWN INDICATION
  18. ASPIRIN [Concomitant]
     Indication: PRODUCT USED FOR UNKNOWN INDICATION
  19. TRICOR /00499301/ [Concomitant]
     Indication: PRODUCT USED FOR UNKNOWN INDICATION
  20. MULTIVITAMIN /00097801/ [Concomitant]
     Indication: PRODUCT USED FOR UNKNOWN INDICATION
  21. FISH OIL [Concomitant]
     Indication: PRODUCT USED FOR UNKNOWN INDICATION
  22. VERAPAMIL [Concomitant]
     Indication: PRODUCT USED FOR UNKNOWN INDICATION
  23. LOPRESSOR [Concomitant]
     Indication: PRODUCT USED FOR UNKNOWN INDICATION
  24. LASIX /00032602/ [Concomitant]
     Indication: PRODUCT USED FOR UNKNOWN INDICATION
  25. GLUCOPHAGE [Concomitant]
     Indication: PRODUCT USED FOR UNKNOWN INDICATION

REACTIONS (1)
  - Infusion related reaction [Recovered/Resolved]
